FAERS Safety Report 4776016-2 (Version None)
Quarter: 2005Q3

REPORT INFORMATION
  Report Type: 
  Country: None (occurrence: None)
  Receive Date: 20050914
  Receipt Date: 20050211
  Transmission Date: 20060218
  Serious: Yes (Other)
  Sender: FDA-Public Use
  Company Number: 163-20785-05020365

PATIENT
  Sex: Female

DRUGS (5)
  1. THALOMID [Suspect]
     Indication: SARCOMA
     Dosage: ORAL
     Route: 048
  2. PROCARDIA [Suspect]
     Indication: SARCOMA
  3. TOPROL-XL [Suspect]
     Indication: SARCOMA
     Dosage: ORAL
     Route: 048
  4. PROCARDIA [Suspect]
  5. TOPROL-XL [Suspect]

REACTIONS (1)
  - HYPOTENSION [None]
